FAERS Safety Report 12950001 (Version 1)
Quarter: 2016Q4

REPORT INFORMATION
  Report Type: Spontaneous
  Country: US (occurrence: US)
  Receive Date: 20161116
  Receipt Date: 20161116
  Transmission Date: 20170207
  Serious: Yes (Other)
  Sender: FDA-Public Use
  Company Number: None

PATIENT
  Age: 52 Year
  Sex: Female
  Weight: 68.4 kg

DRUGS (3)
  1. ONDANSETRON [Suspect]
     Active Substance: ONDANSETRON
     Indication: VOMITING
     Dosage: ?          QUANTITY:9 CAPSULE(S); EVERY 6 HOURS?
     Route: 048
     Dates: start: 20161115, end: 20161116
  2. OXYCODONE AND DON [Concomitant]
  3. TEA [Concomitant]
     Active Substance: TEA LEAF

REACTIONS (6)
  - Muscle twitching [None]
  - Anxiety [None]
  - Tremor [None]
  - Agitation [None]
  - Chills [None]
  - Heart rate increased [None]

NARRATIVE: CASE EVENT DATE: 20161116
